FAERS Safety Report 11725482 (Version 4)
Quarter: 2017Q1

REPORT INFORMATION
  Report Type: Report from Study
  Country: US (occurrence: US)
  Receive Date: 20151111
  Receipt Date: 20170317
  Transmission Date: 20170428
  Serious: Yes (Hospitalization)
  Sender: FDA-Public Use
  Company Number: US-UCBSA-2015023585

PATIENT
  Age: 35 Year
  Sex: Male

DRUGS (2)
  1. VIMPAT [Suspect]
     Active Substance: LACOSAMIDE
     Indication: SEIZURE
     Dosage: 300MG, 2X/DAY (BID), 150 MG/4 A DAY, DAILY DOSE: 600 MG
     Dates: start: 201507
  2. LEVETIRACETAM. [Suspect]
     Active Substance: LEVETIRACETAM
     Indication: SEIZURE
     Dosage: 500 MG/ 4 A DAY, DAILY DOSE: 2000MG
     Dates: start: 201507

REACTIONS (4)
  - Off label use [Unknown]
  - Road traffic accident [Unknown]
  - Overdose [Unknown]
  - Seizure [Unknown]

NARRATIVE: CASE EVENT DATE: 201507
